FAERS Safety Report 21678079 (Version 1)
Quarter: 2022Q4

REPORT INFORMATION
  Report Type: Report from Study
  Country: FR (occurrence: FR)
  Receive Date: 20221203
  Receipt Date: 20221203
  Transmission Date: 20230112
  Serious: Yes (Other)
  Sender: FDA-Public Use
  Company Number: FR-Accord-289426

PATIENT
  Sex: Male

DRUGS (6)
  1. METHOTREXATE [Suspect]
     Active Substance: METHOTREXATE
     Indication: Neurodermatitis
     Dosage: 30 MG/WEEK
     Dates: start: 201611
  2. ALITRETINOIN [Suspect]
     Active Substance: ALITRETINOIN
     Indication: Neurodermatitis
     Dosage: 30 MG/DAY
     Dates: start: 201712
  3. METHOTREXATE [Suspect]
     Active Substance: METHOTREXATE
     Indication: Neurodermatitis
     Dosage: 30 MG/WEEK WAS REDUCED TO 20 MG/WEEK
  4. ALITRETINOIN [Suspect]
     Active Substance: ALITRETINOIN
     Indication: Neurodermatitis
     Dosage: REDUCE TO 10 MG/DAY
  5. ALITRETINOIN [Suspect]
     Active Substance: ALITRETINOIN
     Indication: Neurodermatitis
     Dosage: AGAIN INCREASED TO 20 MG/DAY
  6. ALITRETINOIN [Suspect]
     Active Substance: ALITRETINOIN
     Indication: Neurodermatitis
     Dosage: AGAIN REDUCED TO 10 MG/DAY

REACTIONS (3)
  - Erysipelas [Unknown]
  - Hypercholesterolaemia [Unknown]
  - Off label use [Unknown]
